FAERS Safety Report 8642612 (Version 3)
Quarter: 2012Q4

REPORT INFORMATION
  Report Type: 
  Country: US (occurrence: US)
  Receive Date: 20120629
  Receipt Date: 20120928
  Transmission Date: 20130627
  Serious: No
  Sender: FDA-Public Use
  Company Number: US-PFIZER INC-2012152641

PATIENT
  Age: 49 Year
  Sex: Male

DRUGS (1)
  1. VISTARIL [Suspect]
     Dosage: 50 mg, 3x/day
     Route: 048

REACTIONS (1)
  - Depression [Unknown]
